FAERS Safety Report 5667281-8 (Version None)
Quarter: 2008Q1

REPORT INFORMATION
  Report Type: 
  Country: None (occurrence: None)
  Receive Date: 20080315
  Receipt Date: 20080118
  Transmission Date: 20080703
  Serious: No
  Sender: FDA-Public Use
  Company Number: US-ABBOTT-08P-163-0434151-00

PATIENT
  Sex: Female
  Weight: 56.75 kg

DRUGS (9)
  1. HUMIRA [Suspect]
     Indication: CROHN'S DISEASE
     Route: 058
     Dates: start: 20070501
  2. MESALAMINE [Concomitant]
     Indication: CROHN'S DISEASE
  3. RANITIDINE HYDROCHLORIDE [Concomitant]
     Indication: DRUG USE FOR UNKNOWN INDICATION
     Route: 048
  4. MESALAMINE [Concomitant]
  5. METAMUCIL [Concomitant]
     Indication: CROHN'S DISEASE
     Route: 048
  6. ALENDRONATE SODIUM [Concomitant]
     Indication: DRUG USE FOR UNKNOWN INDICATION
     Route: 048
  7. CALCIUM [Concomitant]
     Indication: DRUG USE FOR UNKNOWN INDICATION
     Route: 048
  8. IRON [Concomitant]
     Indication: DRUG USE FOR UNKNOWN INDICATION
     Route: 048
  9. FOLIC ACID [Concomitant]
     Indication: DRUG USE FOR UNKNOWN INDICATION
     Route: 048

REACTIONS (6)
  - COUGH [None]
  - NASAL CONGESTION [None]
  - NASOPHARYNGITIS [None]
  - PAIN [None]
  - PHARYNGOLARYNGEAL PAIN [None]
  - VOMITING [None]
